FAERS Safety Report 5754151-X (Version None)
Quarter: 2008Q2

REPORT INFORMATION
  Report Type: 
  Country: None (occurrence: None)
  Receive Date: 20080530
  Receipt Date: 20080520
  Transmission Date: 20081010
  Serious: Yes (Hospitalization)
  Sender: FDA-Public Use
  Company Number: US-ABBOTT-08P-163-0453003-00

PATIENT
  Sex: Male
  Weight: 95.34 kg

DRUGS (3)
  1. HUMIRA [Suspect]
     Indication: CROHN'S DISEASE
     Route: 058
     Dates: start: 20071019
  2. HUMIRA [Suspect]
     Route: 058
     Dates: start: 20071102
  3. HUMIRA [Suspect]
     Route: 058
     Dates: start: 20080401

REACTIONS (8)
  - ABDOMINAL PAIN [None]
  - CONSTIPATION [None]
  - CROHN'S DISEASE [None]
  - INTESTINAL OBSTRUCTION [None]
  - INTESTINAL STENOSIS [None]
  - SMALL INTESTINAL OBSTRUCTION [None]
  - TREATMENT NONCOMPLIANCE [None]
  - VOMITING [None]
